FAERS Safety Report 10550671 (Version 3)
Quarter: 2014Q4

REPORT INFORMATION
  Report Type: Spontaneous
  Country: US (occurrence: US)
  Receive Date: 20141029
  Receipt Date: 20141103
  Transmission Date: 20150529
  Serious: Yes (Death, Hospitalization)
  Sender: FDA-Public Use
  Company Number: US-UNITED THERAPEUTICS-UNT-2014-009016

PATIENT
  Age: 66 Year
  Sex: Male
  Weight: 91.15 kg

DRUGS (2)
  1. TRACLEER [Concomitant]
     Active Substance: BOSENTAN\BOSENTAN MONOHYDRATE
     Indication: PRODUCT USED FOR UNKNOWN INDICATION
  2. REMODULIN [Suspect]
     Active Substance: TREPROSTINIL
     Indication: PULMONARY ARTERIAL HYPERTENSION
     Dosage: 0.0972 ?G/KG, CONTINUING
     Route: 041
     Dates: start: 20100611

REACTIONS (2)
  - Death [Fatal]
  - Cardioversion [Unknown]

NARRATIVE: CASE EVENT DATE: 201410
